FAERS Safety Report 7170739-6 (Version None)
Quarter: 2010Q4

REPORT INFORMATION
  Report Type: 
  Country: None (occurrence: None)
  Receive Date: 20101217
  Receipt Date: 20101213
  Transmission Date: 20110411
  Serious: Yes (Life-Threatening, Hospitalization, Other)
  Sender: FDA-Public Use
  Company Number: GB-ROXANE LABORATORIES, INC.-2010-RO-01681RO

PATIENT
  Age: 27 Year
  Sex: Female

DRUGS (2)
  1. PROPRANOLOL [Suspect]
  2. LORAZEPAM [Suspect]
     Indication: CONVULSION

REACTIONS (4)
  - CIRCULATORY COLLAPSE [None]
  - DRUG INEFFECTIVE [None]
  - GRAND MAL CONVULSION [None]
  - INTENTIONAL OVERDOSE [None]
